FAERS Safety Report 16775856 (Version 1)
Quarter: 2019Q3

REPORT INFORMATION
  Report Type: Spontaneous
  Country: US (occurrence: US)
  Receive Date: 20190905
  Receipt Date: 20190905
  Transmission Date: 20191005
  Serious: No
  Sender: FDA-Public Use
  Company Number: US-PFIZER INC-2019379934

PATIENT
  Age: 68 Year
  Sex: Female

DRUGS (3)
  1. LOPID [Suspect]
     Active Substance: GEMFIBROZIL
     Dosage: UNK
  2. SIMVASTATIN. [Suspect]
     Active Substance: SIMVASTATIN
     Dosage: UNK
  3. CODEINE [Suspect]
     Active Substance: CODEINE
     Dosage: UNK

REACTIONS (2)
  - Muscle spasms [Unknown]
  - Drug hypersensitivity [Unknown]
